FAERS Safety Report 7096785-9 (Version None)
Quarter: 2010Q4

REPORT INFORMATION
  Report Type: 
  Country: None (occurrence: None)
  Receive Date: 20101111
  Receipt Date: 20100428
  Transmission Date: 20110411
  Serious: No
  Sender: FDA-Public Use
  Company Number: US-KINGPHARMUSA00001-K201000531

PATIENT
  Sex: Female
  Weight: 63.492 kg

DRUGS (5)
  1. FLECTOR [Suspect]
     Indication: ARTHRALGIA
     Dosage: 1 PATCH, QHS, (TWICE)
     Route: 061
     Dates: start: 20100401
  2. FLECTOR [Suspect]
     Indication: BACK PAIN
  3. BENADRYL [Concomitant]
     Indication: INSOMNIA
     Dosage: UNK
  4. LIDODERM [Concomitant]
     Indication: ARTHRALGIA
     Dosage: UNK PATCH, UNK
     Route: 061
  5. LIDODERM [Concomitant]
     Indication: BACK PAIN

REACTIONS (1)
  - DRUG INEFFECTIVE [None]
